FAERS Safety Report 6267529-5 (Version None)
Quarter: 2009Q3

REPORT INFORMATION
  Report Type: 
  Country: None (occurrence: None)
  Receive Date: 20090714
  Receipt Date: 20090701
  Transmission Date: 20100115
  Serious: Yes (Other)
  Sender: FDA-Public Use
  Company Number: PHHY2009JP18633

PATIENT
  Age: 34 Year
  Sex: Male

DRUGS (7)
  1. AMN107 AMN+CAP [Suspect]
     Indication: CHRONIC MYELOID LEUKAEMIA
     Dosage: 800 MG DAILY
     Route: 048
     Dates: start: 20090319, end: 20090508
  2. GASTER [Concomitant]
     Dosage: 20MG
     Route: 048
  3. BAKTAR [Concomitant]
     Route: 048
  4. PREDNISOLONE [Concomitant]
     Indication: CHRONIC MYELOID LEUKAEMIA
     Dosage: 2DF
  5. GLYCYRON [Concomitant]
     Dosage: 3DF
     Route: 048
  6. ZYLORIC [Concomitant]
     Dosage: 200MG
     Route: 048
  7. BIOFERMIN [Concomitant]
     Dosage: 18MG
     Route: 048

REACTIONS (3)
  - ARRHYTHMIA [None]
  - CHEST DISCOMFORT [None]
  - VENTRICULAR EXTRASYSTOLES [None]
